FAERS Safety Report 4686933-X (Version None)
Quarter: 2005Q2

REPORT INFORMATION
  Report Type: 
  Country: None (occurrence: None)
  Receive Date: 20050606
  Receipt Date: 20050519
  Transmission Date: 20051028
  Serious: Yes (Life-Threatening, Hospitalization, Other)
  Sender: FDA-Public Use
  Company Number: JP_050406408

PATIENT
  Age: 50 Year
  Sex: Female
  Weight: 65 kg

DRUGS (7)
  1. ZYPREXA [Suspect]
     Indication: MANIA
     Dosage: 15 MG DAY
     Dates: start: 20020528, end: 20030725
  2. CLONAZEPAM [Concomitant]
  3. HALCION [Concomitant]
  4. SILECE (FLUNITRAZEPAM EG) [Concomitant]
  5. CARBIDOPA W/LEVODOPA [Concomitant]
  6. PURSENNID [Concomitant]
  7. VALPROIC ACID [Concomitant]

REACTIONS (19)
  - ABNORMAL BEHAVIOUR [None]
  - ALANINE AMINOTRANSFERASE INCREASED [None]
  - ASPARTATE AMINOTRANSFERASE INCREASED [None]
  - BASAL GANGLION DEGENERATION [None]
  - CEREBRAL ATROPHY [None]
  - COGNITIVE DISORDER [None]
  - DEPRESSED LEVEL OF CONSCIOUSNESS [None]
  - ECHOCARDIOGRAM ABNORMAL [None]
  - ELECTROCARDIOGRAM [None]
  - ELECTROCARDIOGRAM T WAVE INVERSION [None]
  - HYPERHIDROSIS [None]
  - NEUROLEPTIC MALIGNANT SYNDROME [None]
  - OXYGEN SATURATION DECREASED [None]
  - PARKINSONISM [None]
  - PULMONARY ARTERY THROMBOSIS [None]
  - PYREXIA [None]
  - RESPIRATORY DISORDER [None]
  - RESTLESSNESS [None]
  - WEIGHT FLUCTUATION [None]
